FAERS Safety Report 7466836-8 (Version None)
Quarter: 2011Q2

REPORT INFORMATION
  Report Type: 
  Country: None (occurrence: None)
  Receive Date: 20110509
  Receipt Date: 20100913
  Transmission Date: 20111010
  Serious: Yes (Hospitalization)
  Sender: FDA-Public Use
  Company Number: US-ALEXION-A201001110

PATIENT
  Sex: Male

DRUGS (10)
  1. SOLIRIS [Suspect]
     Dosage: 600 MG, UNK
     Route: 042
     Dates: start: 20090928, end: 20090928
  2. SOLIRIS [Suspect]
     Dosage: 300 MG, UNK
     Route: 042
     Dates: start: 20091005, end: 20091005
  3. SOLIRIS [Suspect]
     Indication: PAROXYSMAL NOCTURNAL HAEMOGLOBINURIA
     Dosage: UNK
     Route: 042
  4. SOLIRIS [Suspect]
     Dosage: 600 MG, UNK
     Route: 042
     Dates: start: 20091014
  5. SOLIRIS [Suspect]
     Dosage: 900 MG, Q2W
     Route: 042
     Dates: start: 20090817
  6. SOLIRIS [Suspect]
     Dosage: 600 MG, UNK
     Route: 042
     Dates: start: 20090921, end: 20090921
  7. SOLIRIS [Suspect]
     Dosage: 900 MG, Q2W
     Route: 042
     Dates: start: 20100818
  8. PREDNISONE [Concomitant]
     Indication: HYPOPITUITARISM
     Dosage: 10 MG, QD
     Route: 048
  9. LEVOTHYROXINE SODIUM [Concomitant]
     Indication: HYPOPITUITARISM
     Dosage: 125 MG, QD
     Route: 048
  10. FOLATE [Concomitant]
     Dosage: UNK
     Route: 048

REACTIONS (8)
  - EXCORIATION [None]
  - PYREXIA [None]
  - FALL [None]
  - PAIN IN EXTREMITY [None]
  - HAEMOGLOBIN DECREASED [None]
  - CHROMATURIA [None]
  - NAUSEA [None]
  - STAPHYLOCOCCAL INFECTION [None]
